FAERS Safety Report 6964377-5 (Version None)
Quarter: 2010Q3

REPORT INFORMATION
  Report Type: 
  Country: None (occurrence: None)
  Receive Date: 20100903
  Receipt Date: 20100826
  Transmission Date: 20110219
  Serious: Yes (Other)
  Sender: FDA-Public Use
  Company Number: US-ASTRAZENECA-2007UW21505

PATIENT
  Age: 632 Month
  Sex: Female
  Weight: 104.8 kg

DRUGS (32)
  1. SEROQUEL [Suspect]
     Indication: ANXIETY
     Dosage: 75 MG-800 MG
     Route: 048
     Dates: start: 19990101, end: 20040201
  2. SEROQUEL [Suspect]
     Indication: DEPRESSION
     Dosage: 75 MG-800 MG
     Route: 048
     Dates: start: 19990101, end: 20040201
  3. SEROQUEL [Suspect]
     Indication: INSOMNIA
     Dosage: 75 MG-800 MG
     Route: 048
     Dates: start: 19990101, end: 20040201
  4. SEROQUEL [Suspect]
     Dosage: 75-800 MG
     Route: 048
     Dates: start: 20001001, end: 20040201
  5. SEROQUEL [Suspect]
     Dosage: 75-800 MG
     Route: 048
     Dates: start: 20001001, end: 20040201
  6. SEROQUEL [Suspect]
     Dosage: 75-800 MG
     Route: 048
     Dates: start: 20001001, end: 20040201
  7. SEROQUEL [Suspect]
     Dosage: 25-200 MG
     Route: 048
     Dates: start: 20010501
  8. SEROQUEL [Suspect]
     Dosage: 25-200 MG
     Route: 048
     Dates: start: 20010501
  9. SEROQUEL [Suspect]
     Dosage: 25-200 MG
     Route: 048
     Dates: start: 20010501
  10. PAXIL [Concomitant]
     Dosage: 10-30 MG
     Dates: start: 20010501
  11. WELLBUTRIN [Concomitant]
     Dosage: 100 MG
     Dates: start: 20010717
  12. ZOLOFT [Concomitant]
     Dosage: 50-100 MG
     Dates: start: 20011020
  13. REMERON [Concomitant]
     Dates: start: 20020912
  14. AVANDIA [Concomitant]
     Dates: start: 20030820
  15. ACTOS [Concomitant]
     Dates: start: 20060730
  16. AMARYL [Concomitant]
     Dates: start: 20030820
  17. DIPHENHYDRAMINE HCL [Concomitant]
     Dates: start: 20020517
  18. AMITRIPTYLINE HYDROCHLORIDE [Concomitant]
     Dosage: 25-75 MG
     Dates: start: 20020926
  19. NAPROXEN SOD [Concomitant]
     Dates: start: 20030107
  20. SULFAMETHOXAZOLE AND TRIMETHOPRIM DOUBLE STRENGTH [Concomitant]
     Dosage: 800-160
     Dates: start: 20030214
  21. DIFLUCAN [Concomitant]
     Dates: start: 20030214
  22. LEXAPRO [Concomitant]
     Dosage: 10-20 MG
     Dates: start: 20030428
  23. OXYCODONE HCL AND ACETAMINOPHEN [Concomitant]
     Dosage: 5-325 MG
     Dates: start: 20030715
  24. METOCLOPRAMIDE [Concomitant]
     Dates: start: 20040615
  25. LISINOPRIL [Concomitant]
     Dosage: 2.5-20 MG
     Dates: start: 20060201
  26. PRANDIN [Concomitant]
     Dates: start: 20060201
  27. TEMAZEPAM [Concomitant]
     Dates: start: 20060201
  28. GLIPIZIDE [Concomitant]
     Dates: start: 20060620
  29. APAP W/ CODEINE [Concomitant]
     Dosage: 300-30 MG
     Dates: start: 20070205
  30. RISPERDAL [Concomitant]
     Indication: DEPRESSION
     Dates: start: 19920101, end: 19930101
  31. ZYPREXA [Concomitant]
     Indication: DEPRESSION
     Dates: start: 19970101, end: 20000101
  32. ZYPREXA [Concomitant]
     Indication: ANXIETY
     Dates: start: 19970101, end: 20000101

REACTIONS (13)
  - BLOOD CHOLESTEROL INCREASED [None]
  - DIABETES MELLITUS INADEQUATE CONTROL [None]
  - DIABETIC COMPLICATION [None]
  - FURUNCLE [None]
  - HYPERLIPIDAEMIA [None]
  - HYPERSENSITIVITY [None]
  - INCREASED APPETITE [None]
  - JOINT INJURY [None]
  - JOINT SPRAIN [None]
  - NEUROPATHY PERIPHERAL [None]
  - SOMNOLENCE [None]
  - SYSTEMIC LUPUS ERYTHEMATOSUS [None]
  - TYPE 2 DIABETES MELLITUS [None]
